FAERS Safety Report 6774854-8 (Version None)
Quarter: 2010Q2

REPORT INFORMATION
  Report Type: 
  Country: None (occurrence: None)
  Receive Date: 20100616
  Receipt Date: 20100616
  Transmission Date: 20101027
  Serious: Yes (Life-Threatening)
  Sender: FDA-Public Use
  Company Number: None

PATIENT
  Age: 55 Year
  Sex: Female
  Weight: 52.1637 kg

DRUGS (1)
  1. ACTONEL [Suspect]
     Indication: OSTEOPOROSIS
     Dosage: 35 MG WEEKLY PO
     Route: 048
     Dates: start: 20090601, end: 20090901

REACTIONS (12)
  - ALOPECIA [None]
  - CONSTIPATION [None]
  - DIARRHOEA HAEMORRHAGIC [None]
  - HEADACHE [None]
  - HEART RATE INCREASED [None]
  - HEART RATE IRREGULAR [None]
  - MUSCLE SPASMS [None]
  - NERVOUS SYSTEM DISORDER [None]
  - PRESYNCOPE [None]
  - SKIN DISCOLOURATION [None]
  - URINARY TRACT INFECTION [None]
  - VISION BLURRED [None]
